FAERS Safety Report 5270276-X (Version None)
Quarter: 2007Q1

REPORT INFORMATION
  Report Type: 
  Country: None (occurrence: None)
  Receive Date: 20070320
  Receipt Date: 20070312
  Transmission Date: 20070707
  Serious: Yes (Death, Other)
  Sender: FDA-Public Use
  Company Number: JP-ELI_LILLY_AND_COMPANY-JP200702000009

PATIENT
  Age: 72 Year
  Sex: Male

DRUGS (3)
  1. GEMZAR [Suspect]
     Indication: LUNG NEOPLASM MALIGNANT
     Dosage: 1000 MG, OTHER
     Route: 042
     Dates: start: 20031218
  2. CARBOPLATIN [Concomitant]
     Indication: LUNG NEOPLASM MALIGNANT
     Dosage: 450 MG, OTHER
     Route: 042
     Dates: start: 20031218
  3. VINORELBINE TARTRATE [Concomitant]
     Indication: LUNG NEOPLASM MALIGNANT
     Dosage: 30 MG, OTHER
     Route: 042
     Dates: start: 20031218

REACTIONS (7)
  - CYTOMEGALOVIRUS INFECTION [None]
  - GASTROENTERITIS STAPHYLOCOCCAL [None]
  - INTERSTITIAL LUNG DISEASE [None]
  - MUSCLE ATROPHY [None]
  - MUSCLE FATIGUE [None]
  - MYOPATHY STEROID [None]
  - SUBCLAVIAN VEIN THROMBOSIS [None]
